FAERS Safety Report 4378059-X (Version None)
Quarter: 2004Q2

REPORT INFORMATION
  Report Type: 
  Country: None (occurrence: None)
  Receive Date: 20040609
  Receipt Date: 20040525
  Transmission Date: 20050107
  Serious: Yes (Hospitalization)
  Sender: FDA-Public Use
  Company Number: JP_040503182

PATIENT
  Age: 72 Year
  Sex: Female
  Weight: 45 kg

DRUGS (6)
  1. ZYPREXA [Suspect]
     Indication: SCHIZOPHRENIA, PARANOID TYPE
     Dosage: 5 MG DAY
     Dates: start: 20030116
  2. HALOSTEN (HALOPERIDOL) [Concomitant]
  3. VEGETAMIN B [Concomitant]
  4. DORAL [Concomitant]
  5. MAGNESIUM OXIDE [Concomitant]
  6. SEROQUEL [Concomitant]

REACTIONS (7)
  - FALL [None]
  - FEMORAL NECK FRACTURE [None]
  - GASTRITIS EROSIVE [None]
  - MARKEDLY REDUCED DIETARY INTAKE [None]
  - NAUSEA [None]
  - PERSECUTORY DELUSION [None]
  - VOMITING [None]
